FAERS Safety Report 4835524-6 (Version None)
Quarter: 2005Q4

REPORT INFORMATION
  Report Type: 
  Country: None (occurrence: None)
  Receive Date: 20051121
  Receipt Date: 20051109
  Transmission Date: 20060501
  Serious: Yes (Other)
  Sender: FDA-Public Use
  Company Number: GXKR2005US01948

PATIENT
  Age: 52 Year
  Sex: Male

DRUGS (2)
  1. PREDNISOLONE [Suspect]
     Indication: TEMPORAL ARTERITIS
     Dosage: 60 MG, ORAL
     Route: 048
  2. METHYLPREDNISOLONE [Suspect]
     Indication: TEMPORAL ARTERITIS
     Dosage: 1 G, INTRAVENOUS
     Route: 042

REACTIONS (4)
  - CHORIORETINOPATHY [None]
  - MACULAR DEGENERATION [None]
  - RETINAL PIGMENT EPITHELIOPATHY [None]
  - RETINOPATHY [None]
